FAERS Safety Report 5494241-2 (Version None)
Quarter: 2007Q4

REPORT INFORMATION
  Report Type: 
  Country: None (occurrence: None)
  Receive Date: 20071024
  Receipt Date: 20071022
  Transmission Date: 20080405
  Serious: Yes (Hospitalization)
  Sender: FDA-Public Use
  Company Number: JP-SP-2007-03536

PATIENT
  Age: 77 Year
  Sex: Female

DRUGS (7)
  1. IMMUCYST [Suspect]
     Indication: BLADDER CANCER
     Route: 043
     Dates: start: 20070328, end: 20070502
  2. IMMUCYST [Suspect]
     Route: 043
     Dates: start: 20070328, end: 20070502
  3. SENNOSIDE [Concomitant]
     Dates: start: 20070328, end: 20070516
  4. GLICLAZIDE [Concomitant]
     Dates: start: 20070328, end: 20070516
  5. MAGNESIUM OXIDE [Concomitant]
     Dates: start: 20070328, end: 20070516
  6. MOSAPRIDE CITRATE [Concomitant]
     Dates: start: 20070328, end: 20070516
  7. OMEPRAZOLE [Concomitant]
     Dates: start: 20070328, end: 20070516

REACTIONS (4)
  - ILEUS [None]
  - PYREXIA [None]
  - PYURIA [None]
  - WHITE BLOOD CELL COUNT INCREASED [None]
